FAERS Safety Report 7877856-3 (Version None)
Quarter: 2011Q4

REPORT INFORMATION
  Report Type: 
  Country: None (occurrence: None)
  Receive Date: 20111031
  Receipt Date: 20111031
  Transmission Date: 20120403
  Serious: Yes (Life-Threatening, Hospitalization, Disabling, Other)
  Sender: FDA-Public Use
  Company Number: None

PATIENT
  Age: 23 Year
  Sex: Female
  Weight: 58.967 kg

DRUGS (1)
  1. MIRENA [Suspect]
     Indication: CONTRACEPTION
     Dates: start: 20090801, end: 20111001

REACTIONS (10)
  - ABASIA [None]
  - MALAISE [None]
  - BACK PAIN [None]
  - MIGRAINE [None]
  - ASTHENIA [None]
  - PAIN IN EXTREMITY [None]
  - PARAESTHESIA [None]
  - ABDOMINAL DISTENSION [None]
  - ALOPECIA [None]
  - PAIN [None]
